FAERS Safety Report 4366549-5 (Version None)
Quarter: 2004Q2

REPORT INFORMATION
  Report Type: 
  Country: None (occurrence: None)
  Receive Date: 20040527
  Receipt Date: 20040512
  Transmission Date: 20050107
  Serious: No
  Sender: FDA-Public Use
  Company Number: US-MERCK-0405USA01948M

PATIENT
  Age: 27 Year
  Sex: Female

DRUGS (2)
  1. BETAMETHASONE [Concomitant]
     Indication: PREMATURE LABOUR
     Route: 030
  2. INDOCIN [Suspect]
     Indication: PREMATURE LABOUR
     Route: 054

REACTIONS (2)
  - DRUG EXPOSURE DURING PREGNANCY [None]
  - PRESCRIBED OVERDOSE [None]
